FAERS Safety Report 5120805-1 (Version None)
Quarter: 2006Q4

REPORT INFORMATION
  Report Type: 
  Country: None (occurrence: None)
  Receive Date: 20061005
  Receipt Date: 20060926
  Transmission Date: 20070319
  Serious: Yes (Other)
  Sender: FDA-Public Use
  Company Number: US-BAYER-200614103BCC

PATIENT
  Age: 85 Year
  Sex: Female
  Weight: 52 kg

DRUGS (9)
  1. ASPIRIN [Suspect]
     Indication: PROPHYLAXIS
     Dosage: TOTAL DAILY DOSE: 325 MG  UNIT DOSE: 325 MG
     Route: 048
     Dates: start: 19940101
  2. ONE A DAY MAXIMUM [Suspect]
     Indication: VITAMIN SUPPLEMENTATION
     Route: 048
  3. ASPIRIN [Suspect]
     Indication: PROPHYLAXIS
     Dosage: TOTAL DAILY DOSE: 81 MG  UNIT DOSE: 81 MG
     Route: 048
  4. ONE A DAY WOMENS [Suspect]
     Indication: VITAMIN SUPPLEMENTATION
     Route: 048
  5. TENORMIN [Concomitant]
  6. SYNTHROID [Concomitant]
  7. TRANSDERM NITRO PATCH [Concomitant]
  8. ADVAIR DISKUS 100/50 [Concomitant]
  9. COUMADIN [Concomitant]

REACTIONS (3)
  - DYSPEPSIA [None]
  - THROAT IRRITATION [None]
  - THROMBOSIS [None]
